FAERS Safety Report 7671925-9 (Version None)
Quarter: 2011Q3

REPORT INFORMATION
  Report Type: 
  Country: None (occurrence: None)
  Receive Date: 20110809
  Receipt Date: 20110708
  Transmission Date: 20111222
  Serious: Yes (Other)
  Sender: FDA-Public Use
  Company Number: US-GLAXOSMITHKLINE-A0930057A

PATIENT
  Sex: Female

DRUGS (1)
  1. VENTOLIN HFA [Suspect]
     Indication: ASTHMA
     Route: 055

REACTIONS (3)
  - PRODUCT QUALITY ISSUE [None]
  - ASTHMA [None]
  - MALAISE [None]
